FAERS Safety Report 8496227-2 (Version None)
Quarter: 2012Q3

REPORT INFORMATION
  Report Type: 
  Country: None (occurrence: None)
  Receive Date: 20120709
  Receipt Date: 20120703
  Transmission Date: 20120928
  Serious: Yes (Death)
  Sender: FDA-Public Use
  Company Number: BE-JNJFOC-20120700797

PATIENT
  Age: 60 Year
  Sex: Female
  Weight: 60 kg

DRUGS (2)
  1. NIZORAL [Suspect]
     Indication: ALOPECIA
     Route: 048
     Dates: start: 20120323, end: 20120501
  2. SEROQUEL [Suspect]
     Indication: SCHIZOAFFECTIVE DISORDER
     Dosage: STARTED BEFORE NOV-2008
     Route: 048

REACTIONS (1)
  - DEATH [None]
